FAERS Safety Report 24618043 (Version 1)
Quarter: 2024Q4

REPORT INFORMATION
  Report Type: Other
  Country: GB (occurrence: GB)
  Receive Date: 20241114
  Receipt Date: 20241114
  Transmission Date: 20250115
  Serious: Yes (Other)
  Sender: STRIDES
  Company Number: None

PATIENT
  Age: 70 Year

DRUGS (11)
  1. OXYBUTYNIN [Suspect]
     Active Substance: OXYBUTYNIN
     Indication: Product used for unknown indication
     Dosage: 10 MILLIGRAM, EVERY 12 HRS, 5 MG TABLETS TWO TO BE TAKEN TWICE DAILY- PATIENT STATES ONLY TAKING HAL
     Route: 065
     Dates: start: 20241029
  2. LEVOTHYROXINE [Concomitant]
     Active Substance: LEVOTHYROXINE
     Indication: Product used for unknown indication
     Dosage: UNK
     Route: 065
  3. OXYCODONE HYDROCHLORIDE [Concomitant]
     Active Substance: OXYCODONE HYDROCHLORIDE
     Indication: Product used for unknown indication
     Dosage: UNK, 20 MG MODIFIED-RELEASE TABLETS ONE TO BE TAKEN EVERY 12 HOURS
     Route: 065
  4. ANORO ELLIPTA [Concomitant]
     Active Substance: UMECLIDINIUM BROMIDE\VILANTEROL TRIFENATATE
     Indication: Product used for unknown indication
     Dosage: 55 / 22 MICROGRAMS / DOSE DRY POWDER INHALER ONE DOSE TO BE INHALED EACH DAY
     Route: 065
  5. ZOPICLONE [Concomitant]
     Active Substance: ZOPICLONE
     Indication: Product used for unknown indication
     Dosage: UNK, 7.5 MG TABLETS ONE TO BE TAKEN AT NIGHT
     Route: 065
  6. ALVERINE [Concomitant]
     Active Substance: ALVERINE
     Indication: Product used for unknown indication
     Dosage: UNK, 60 MG CAPSULES 1-2 TABLETS TO BE TAKEN THREE TIMES DAILY WHEN REQUIRED
     Route: 065
  7. VENLAFAXINE [Concomitant]
     Active Substance: VENLAFAXINE HYDROCHLORIDE
     Indication: Product used for unknown indication
     Dosage: UNK, 37.5 MG TABLETS THREE TO BE TAKEN AT NIGHT
     Route: 065
  8. BENZYDAMINE [Concomitant]
     Active Substance: BENZYDAMINE
     Indication: Product used for unknown indication
     Dosage: UNK, ORAL RINSE 0.15% SOLUTION RINSE OR GARGLE USING 15 ML EVERY ONE AND A HALF TO THREE HOURS AS RE
     Route: 065
  9. CARBOCYSTEINE [Concomitant]
     Active Substance: CARBOCYSTEINE
     Indication: Product used for unknown indication
     Dosage: 375 MG CAPSULES TWO TO BE TAKEN THREE TIMES A DAY- PT STATES 750MG OM + ON
     Route: 065
  10. GABAPENTIN [Concomitant]
     Active Substance: GABAPENTIN
     Indication: Product used for unknown indication
     Dosage: UNK, 300 MG CAPSULES ONE TO BE TAKEN THREE TIMES A DAY- PT STATES 300MG OM + ON
     Route: 065
  11. OMEPRAZOLE [Concomitant]
     Active Substance: OMEPRAZOLE
     Indication: Product used for unknown indication
     Dosage: UNK, 20 MG GASTRO-RESISTANT CAPSULES ONE TO BE TAKEN TWICE A DAY
     Route: 065

REACTIONS (1)
  - Tooth loss [Unknown]

NARRATIVE: CASE EVENT DATE: 20240101
